FAERS Safety Report 6038970-0 (Version None)
Quarter: 2009Q1

REPORT INFORMATION
  Report Type: 
  Country: None (occurrence: None)
  Receive Date: 20090114
  Receipt Date: 20090114
  Transmission Date: 20090719
  Serious: Yes (Death, Life-Threatening, Hospitalization)
  Sender: FDA-Public Use
  Company Number: None

PATIENT
  Age: 67 Year
  Sex: Male
  Weight: 91 kg

DRUGS (1)
  1. INHALED HUMAN INSULIN (INHALED HUMAN INSULIN) UNKNOWN [Suspect]
     Dosage: 6 MG, 3X/DAY, RESPIRATORY
     Route: 055
     Dates: start: 20070502, end: 20080529

REACTIONS (15)
  - BLOOD SODIUM DECREASED [None]
  - BLOOD THYROID STIMULATING HORMONE DECREASED [None]
  - BLOOD UREA INCREASED [None]
  - CEREBRAL HAEMORRHAGE [None]
  - CEREBRAL ISCHAEMIA [None]
  - GLIOBLASTOMA [None]
  - LUNG NEOPLASM [None]
  - LYMPHOCYTE COUNT DECREASED [None]
  - MONOCYTE COUNT INCREASED [None]
  - NEUTROPHIL COUNT INCREASED [None]
  - NODULE [None]
  - THYROXINE FREE INCREASED [None]
  - TRACHEAL DISORDER [None]
  - VASOGENIC CEREBRAL OEDEMA [None]
  - WHITE BLOOD CELL COUNT INCREASED [None]
